FAERS Safety Report 11274626 (Version 2)
Quarter: 2015Q4

REPORT INFORMATION
  Report Type: Report from Study
  Country: US (occurrence: US)
  Receive Date: 20150715
  Receipt Date: 20151118
  Transmission Date: 20160304
  Serious: Yes (Other)
  Sender: FDA-Public Use
  Company Number: US-AMGEN-USASL2015069524

PATIENT
  Age: 47 Year
  Sex: Male
  Weight: 107.48 kg

DRUGS (7)
  1. TRIAMTERENE. [Concomitant]
     Active Substance: TRIAMTERENE
     Dosage: 17.5 MG, QD
     Route: 048
  2. HCTZ [Concomitant]
     Active Substance: HYDROCHLOROTHIAZIDE
     Dosage: 15 MG, QD
     Route: 048
  3. RANITIDINE [Concomitant]
     Active Substance: RANITIDINE\RANITIDINE HYDROCHLORIDE
     Dosage: 150 MG, BID
     Route: 048
  4. ENBREL [Suspect]
     Active Substance: ETANERCEPT
     Indication: RHEUMATOID ARTHRITIS
     Dosage: 50 MG, QWK
     Route: 058
     Dates: start: 20150625, end: 20150910
  5. ATORVASTATIN [Concomitant]
     Active Substance: ATORVASTATIN
     Indication: BLOOD CHOLESTEROL INCREASED
     Dosage: 20 MG, QD
     Route: 048
  6. METHOTREXATE [Concomitant]
     Active Substance: METHOTREXATE
     Indication: RHEUMATOID ARTHRITIS
     Dosage: 20 MG, QWK
     Route: 048
  7. PREDNISONE. [Concomitant]
     Active Substance: PREDNISONE
     Dosage: 5 MG, BID
     Route: 048

REACTIONS (7)
  - Pharyngeal inflammation [Not Recovered/Not Resolved]
  - Choking [Not Recovered/Not Resolved]
  - Injection site erythema [Recovered/Resolved]
  - Oropharyngeal pain [Unknown]
  - Pharyngeal oedema [Not Recovered/Not Resolved]
  - Injection site reaction [Recovered/Resolved]
  - Injection site swelling [Recovered/Resolved]

NARRATIVE: CASE EVENT DATE: 2015
